FAERS Safety Report 13761453 (Version 2)
Quarter: 2017Q3

REPORT INFORMATION
  Report Type: Spontaneous
  Country: US (occurrence: US)
  Receive Date: 20170717
  Receipt Date: 20170719
  Transmission Date: 20171127
  Serious: Yes (Hospitalization)
  Sender: FDA-Public Use
  Company Number: US-ALKERMES INC.-ALK-2017-002836

PATIENT
  Age: 35 Year
  Sex: Male
  Weight: 88.44 kg

DRUGS (2)
  1. NALTREXONE [Suspect]
     Active Substance: NALTREXONE
     Indication: DRUG DEPENDENCE
     Dosage: UNK
     Route: 048
  2. VIVITROL [Suspect]
     Active Substance: NALTREXONE
     Indication: DRUG DEPENDENCE
     Dosage: 380 MG, QMO
     Route: 030
     Dates: start: 201406, end: 201512

REACTIONS (5)
  - Hepatic enzyme increased [Recovered/Resolved]
  - Jaundice [Unknown]
  - Gallbladder disorder [Unknown]
  - Bile duct stone [Unknown]
  - Pain [Unknown]

NARRATIVE: CASE EVENT DATE: 201703
